FAERS Safety Report 18589100 (Version 2)
Quarter: 2021Q1

REPORT INFORMATION
  Report Type: Spontaneous
  Country: TR (occurrence: TR)
  Receive Date: 20201208
  Receipt Date: 20210103
  Transmission Date: 20210419
  Serious: Yes (Other)
  Sender: FDA-Public Use
  Company Number: TR-JNJFOC-20201200579

PATIENT
  Age: 41 Year
  Sex: Male
  Weight: 65 kg

DRUGS (4)
  1. REMICADE [Suspect]
     Active Substance: INFLIXIMAB
     Indication: PSORIATIC ARTHROPATHY
     Route: 042
     Dates: start: 20200707, end: 20201019
  2. METHYLPREDNISOLONE. [Concomitant]
     Active Substance: METHYLPREDNISOLONE
  3. METHOTREXATE. [Concomitant]
     Active Substance: METHOTREXATE
     Indication: PSORIASIS
  4. METHOTREXATE. [Concomitant]
     Active Substance: METHOTREXATE
     Dosage: BIW

REACTIONS (1)
  - Kaposi^s sarcoma [Not Recovered/Not Resolved]

NARRATIVE: CASE EVENT DATE: 20201103
